FAERS Safety Report 12960431 (Version 1)
Quarter: 2016Q4

REPORT INFORMATION
  Report Type: Report from Study
  Country: US (occurrence: US)
  Receive Date: 20161121
  Receipt Date: 20161121
  Transmission Date: 20170207
  Serious: Yes (Other)
  Sender: FDA-Public Use
  Company Number: US-MALLINCKRODT-T201605053

PATIENT
  Age: 47 Year
  Sex: Female

DRUGS (1)
  1. REPOSITORY CORTICOTROPIN INJECTION [Suspect]
     Active Substance: CORTICOTROPIN
     Indication: RHEUMATOID ARTHRITIS
     Dosage: 80U/1ML 2X/WK (MON. AND THURS.)
     Route: 058
     Dates: start: 20151001

REACTIONS (10)
  - Red blood cell sedimentation rate increased [Unknown]
  - Rash [Recovering/Resolving]
  - Hearing disability [Unknown]
  - Fatigue [Not Recovered/Not Resolved]
  - Factor IX deficiency [Not Recovered/Not Resolved]
  - Dyspnoea [Unknown]
  - Granulocytes abnormal [Unknown]
  - Drug effect decreased [Unknown]
  - Red blood cell count increased [Unknown]
  - Joint stiffness [Recovering/Resolving]

NARRATIVE: CASE EVENT DATE: 2016
